FAERS Safety Report 8021786-3 (Version None)
Quarter: 2011Q4

REPORT INFORMATION
  Report Type: 
  Country: None (occurrence: None)
  Receive Date: 20111229
  Receipt Date: 20111223
  Transmission Date: 20120403
  Serious: Yes (Hospitalization)
  Sender: FDA-Public Use
  Company Number: SP05377

PATIENT
  Age: 55 Year
  Sex: Male

DRUGS (5)
  1. OSMOPREP [Suspect]
     Indication: BOWEL PREPARATION
     Dosage: (32 TABLETS), ORAL
     Route: 048
     Dates: start: 20111122, end: 20111123
  2. SOTALOL HCL [Concomitant]
  3. ALLOPURINOL [Concomitant]
  4. HEPARIN [Concomitant]
  5. ATORVASTATIN [Concomitant]

REACTIONS (7)
  - DILATATION ATRIAL [None]
  - LEFT VENTRICULAR DYSFUNCTION [None]
  - ATRIAL FIBRILLATION [None]
  - DYSPNOEA [None]
  - CHEST PAIN [None]
  - TACHYARRHYTHMIA [None]
  - CONDITION AGGRAVATED [None]
